FAERS Safety Report 10034995 (Version 1)
Quarter: 2014Q1

REPORT INFORMATION
  Report Type: Spontaneous
  Country: PH (occurrence: PH)
  Receive Date: 20140325
  Receipt Date: 20140325
  Transmission Date: 20141002
  Serious: Yes (Death)
  Sender: FDA-Public Use
  Company Number: PH-MERCK-1403PHL010792

PATIENT
  Age: 76 Year
  Sex: Female

DRUGS (1)
  1. JANUVIA [Suspect]
     Dosage: 100 MG, ONCE A DAY
     Route: 048
     Dates: start: 201306

REACTIONS (2)
  - Death [Fatal]
  - Haematemesis [Unknown]
